FAERS Safety Report 9627294 (Version 1)
Quarter: 2013Q4

REPORT INFORMATION
  Report Type: Not Available
  Country: US (occurrence: US)
  Receive Date: 20131016
  Receipt Date: 20131016
  Transmission Date: 20140711
  Serious: Yes (Other)
  Sender: FDA-Public Use
  Company Number: US-LUNDBECK-DKLU1085307

PATIENT
  Age: 10 Month
  Sex: Female

DRUGS (5)
  1. SABRIL (FOR ORAL SOLUTION) [Suspect]
     Indication: INFANTILE SPASMS
     Dates: start: 20121006
  2. SABRIL (FOR ORAL SOLUTION) [Suspect]
     Dates: start: 20121008
  3. KLONOPIN [Suspect]
     Indication: PRODUCT USED FOR UNKNOWN INDICATION
  4. KEPPRA [Suspect]
     Indication: PRODUCT USED FOR UNKNOWN INDICATION
  5. TOPAMAX [Suspect]
     Indication: PRODUCT USED FOR UNKNOWN INDICATION

REACTIONS (5)
  - Infantile spasms [Unknown]
  - Dyskinesia [Unknown]
  - Listless [Unknown]
  - Eating disorder symptom [Recovering/Resolving]
  - Hypotonia [Recovering/Resolving]
